FAERS Safety Report 7740037 (Version 5)
Quarter: 2013Q1

REPORT INFORMATION
  Report Type: Spontaneous
  Country: US (occurrence: US)
  Receive Date: 20101227
  Receipt Date: 20130124
  Transmission Date: 20140127
  Serious: Yes (Hospitalization, Other)
  Sender: FDA-Public Use
  Company Number: US-BAYER-2010-007079

PATIENT
  Age: 16 Year
  Sex: Female
  Weight: 65.76 kg

DRUGS (10)
  1. YAZ [Suspect]
     Indication: CONTRACEPTION
     Route: 048
     Dates: start: 200805, end: 200812
  2. SEROQUEL [Concomitant]
     Indication: DEPRESSION
     Dosage: 50 MG, DAILY
     Route: 048
  3. WELLBUTRIN [Concomitant]
     Indication: DEPRESSION
     Dosage: 200 MG, DAILY
     Route: 048
  4. TYLENOL [Concomitant]
     Indication: PAIN
     Dosage: 500MG EVERY 6 HOURS AS NEEDED
     Route: 048
  5. FERROUS SULFATE [Concomitant]
     Dosage: 325 MG, DAILY
     Route: 048
  6. MOTRIN [Concomitant]
     Indication: PAIN
     Route: 048
  7. FLEXERIL [Concomitant]
     Indication: BACK PAIN
  8. LORTAB [Concomitant]
     Indication: BACK PAIN
  9. AZITHROMYCIN [Concomitant]
     Dosage: 250 MG, UNK
  10. CEPHALEXIN [Concomitant]
     Dosage: 500 MG, UNK

REACTIONS (9)
  - Deep vein thrombosis [None]
  - Depression [None]
  - Anxiety [None]
  - Pain [None]
  - Fear [None]
  - Local swelling [None]
  - Gait disturbance [None]
  - Emotional distress [None]
  - Depressed mood [None]
